FAERS Safety Report 8529361-9 (Version None)
Quarter: 2012Q3

REPORT INFORMATION
  Report Type: 
  Country: None (occurrence: None)
  Receive Date: 20120723
  Receipt Date: 20120711
  Transmission Date: 20120928
  Serious: Yes (Other)
  Sender: FDA-Public Use
  Company Number: US-JNJFOC-20120705786

PATIENT
  Sex: Male
  Weight: 72.58 kg

DRUGS (1)
  1. REMICADE [Suspect]
     Indication: COLITIS ULCERATIVE
     Route: 042
     Dates: start: 20111201, end: 20120201

REACTIONS (5)
  - EAR INFECTION [None]
  - FATIGUE [None]
  - FALL [None]
  - DIZZINESS [None]
  - DIARRHOEA [None]
